FAERS Safety Report 6790195-7 (Version None)
Quarter: 2010Q2

REPORT INFORMATION
  Report Type: 
  Country: None (occurrence: None)
  Receive Date: 20100624
  Receipt Date: 20100616
  Transmission Date: 20101027
  Serious: Yes (Hospitalization)
  Sender: FDA-Public Use
  Company Number: US-ASTRAZENECA-2010SE13756

PATIENT
  Age: 28103 Day
  Sex: Female
  Weight: 81.6 kg

DRUGS (10)
  1. SYMBICORT [Suspect]
     Indication: CHRONIC OBSTRUCTIVE PULMONARY DISEASE
     Dosage: 80/4.5 UG 2 PUFFS TWICE A DAY
     Route: 055
     Dates: start: 20060101
  2. SYMBICORT [Suspect]
     Dosage: 80/4.5 UG 2 PUFFS TWICE A DAY
     Route: 055
     Dates: start: 20100108
  3. SYMBICORT [Suspect]
     Dosage: 80/4.5 UG 2 PUFFS TWICE A DAY
     Route: 055
  4. SYMBICORT [Suspect]
     Dosage: 80/4.5 UG 2 PUFFS TWICE A DAY
     Route: 055
     Dates: start: 20100305
  5. SIMVASTATIN [Concomitant]
  6. ALBUTEROL [Concomitant]
  7. AVALIDE [Concomitant]
  8. CALCIUM WITH VITAMIN D [Concomitant]
  9. ASPIRIN [Concomitant]
  10. PLAVIX [Concomitant]

REACTIONS (2)
  - DEVICE MALFUNCTION [None]
  - HIP FRACTURE [None]
